FAERS Safety Report 20985656 (Version 2)
Quarter: 2022Q3

REPORT INFORMATION
  Report Type: Spontaneous
  Country: NL (occurrence: NL)
  Receive Date: 20220621
  Receipt Date: 20220714
  Transmission Date: 20221027
  Serious: Yes (Other)
  Sender: FDA-Public Use
  Company Number: NL-ASTELLAS-2022US018617

PATIENT
  Age: 81 Year
  Sex: Male

DRUGS (2)
  1. CLOPIDOGREL [Interacting]
     Active Substance: CLOPIDOGREL BISULFATE
     Indication: Myocardial infarction
     Dosage: UNK, DAILY (FREQ. (EVERYDAY)
     Route: 065
  2. XTANDI [Interacting]
     Active Substance: ENZALUTAMIDE
     Indication: Neoplasm malignant
     Dosage: 160 MILLIGRAM, ONCE A DAY
     Route: 048
     Dates: start: 202103, end: 202202

REACTIONS (4)
  - Blood urine present [Recovered/Resolved with Sequelae]
  - Drug interaction [Recovered/Resolved]
  - Urinary tract inflammation [Recovered/Resolved]
  - Cystitis [Recovered/Resolved]

NARRATIVE: CASE EVENT DATE: 20210401
